FAERS Safety Report 9239167 (Version 2)
Quarter: 2013Q2

REPORT INFORMATION
  Report Type: Spontaneous
  Country: JP (occurrence: JP)
  Receive Date: 20130418
  Receipt Date: 20130522
  Transmission Date: 20140414
  Serious: Yes (Hospitalization)
  Sender: FDA-Public Use
  Company Number: JP-ROCHE-1213954

PATIENT
  Age: 69 Year
  Sex: Female

DRUGS (5)
  1. TAMIFLU [Suspect]
     Indication: ANTIVIRAL PROPHYLAXIS
     Route: 048
     Dates: start: 20130221, end: 20130225
  2. ROCEPHIN [Suspect]
     Indication: ANTIVIRAL PROPHYLAXIS
     Route: 042
     Dates: start: 20130220, end: 20130225
  3. CLARITH [Suspect]
     Indication: PRODUCT USED FOR UNKNOWN INDICATION
     Route: 048
     Dates: start: 20130220, end: 20130225
  4. RIVOTRIL [Concomitant]
     Route: 048
  5. MAGLAX [Concomitant]
     Route: 048

REACTIONS (2)
  - Enterocolitis haemorrhagic [Recovered/Resolved]
  - Proctitis [Recovered/Resolved]
